FAERS Safety Report 9116057 (Version 1)
Quarter: 2013Q1

REPORT INFORMATION
  Report Type: Spontaneous
  Country: IT (occurrence: IT)
  Receive Date: 20130225
  Receipt Date: 20130225
  Transmission Date: 20140127
  Serious: Yes (Hospitalization)
  Sender: FDA-Public Use
  Company Number: IT-BAYER-2013-022225

PATIENT
  Age: 45 Year
  Sex: Male

DRUGS (1)
  1. ASPIRINA [Suspect]
     Dosage: 1 DF, ONCE
     Route: 048
     Dates: start: 20130108, end: 20130108

REACTIONS (3)
  - Dysphonia [Recovering/Resolving]
  - Urticaria [Recovering/Resolving]
  - Palatal oedema [Recovering/Resolving]
